FAERS Safety Report 20430297 (Version 1)
Quarter: 2022Q1

REPORT INFORMATION
  Report Type: Report from Study
  Country: FR (occurrence: FR)
  Receive Date: 20220204
  Receipt Date: 20220204
  Transmission Date: 20220423
  Serious: Yes (Hospitalization)
  Sender: FDA-Public Use
  Company Number: FR-SERVIER-S20005728

PATIENT

DRUGS (7)
  1. PEGASPARGASE [Suspect]
     Active Substance: PEGASPARGASE
     Indication: Acute lymphocytic leukaemia
     Dosage: 1275 IU, DAY 4, DAY 43
     Route: 042
     Dates: start: 20190823
  2. TN UNSPECIFIED [Concomitant]
     Indication: Acute lymphocytic leukaemia
     Dosage: 0.76 MG, DAY 1, DAY 8, DAY 15, DAY 43, DAY 50
     Route: 042
     Dates: start: 20190820
  3. TN UNSPECIFIED [Concomitant]
     Indication: Acute lymphocytic leukaemia
     Dosage: 10 MG, DAY 4, DAY 31
     Route: 037
     Dates: start: 20190823
  4. TN UNSPECIFIED [Concomitant]
     Indication: Acute lymphocytic leukaemia
     Dosage: 12.5 MG, DAY 4, DAY 31
     Route: 037
     Dates: start: 20190823
  5. TN UNSPECIFIED [Concomitant]
     Indication: Acute lymphocytic leukaemia
     Dosage: 25 MG, DAY 4, DAY 31
     Route: 037
     Dates: start: 20190823
  6. TN UNSPECIFIED [Concomitant]
     Indication: Acute lymphocytic leukaemia
     Dosage: 12.8 MG, DAY 1, DAY 8, DAY 15
     Route: 042
     Dates: start: 20190820
  7. TN UNSPECIFIED [Concomitant]
     Indication: Acute lymphocytic leukaemia
     Dosage: 4.5 MG, DAY 1 TO DAY 7, DAY 15 TO DAY 20
     Route: 048
     Dates: start: 20190820

REACTIONS (1)
  - Staphylococcal sepsis [Recovered/Resolved]

NARRATIVE: CASE EVENT DATE: 20190829
